FAERS Safety Report 12811535 (Version 3)
Quarter: 2017Q1

REPORT INFORMATION
  Report Type: Report from Study
  Country: US (occurrence: US)
  Receive Date: 20161005
  Receipt Date: 20170220
  Transmission Date: 20170428
  Serious: Yes (Hospitalization)
  Sender: FDA-Public Use
  Company Number: US-AMGEN-USASP2016098395

PATIENT
  Age: 87 Year
  Sex: Female

DRUGS (2)
  1. PROLIA [Suspect]
     Active Substance: DENOSUMAB
     Indication: OSTEOPOROSIS POSTMENOPAUSAL
     Dosage: 60 MG/ML, Q6MO
     Route: 058
     Dates: start: 20160712
  2. WARFARIN [Concomitant]
     Active Substance: WARFARIN

REACTIONS (12)
  - Rash pruritic [Recovered/Resolved]
  - Erythema [Recovered/Resolved]
  - Parathyroid disorder [Unknown]
  - Chest pain [Not Recovered/Not Resolved]
  - Back pain [Not Recovered/Not Resolved]
  - Rash [Recovered/Resolved]
  - Neck pain [Unknown]
  - Sunburn [Recovered/Resolved]
  - Headache [Unknown]
  - Dysphonia [Unknown]
  - Pain in extremity [Not Recovered/Not Resolved]
  - Hypercalcaemia [Unknown]

NARRATIVE: CASE EVENT DATE: 201607
